FAERS Safety Report 12155793 (Version 1)
Quarter: 2016Q1

REPORT INFORMATION
  Report Type: Spontaneous
  Country: US (occurrence: US)
  Receive Date: 20160307
  Receipt Date: 20160307
  Transmission Date: 20160526
  Serious: Yes (Death)
  Sender: FDA-Public Use
  Company Number: US-FRI-1000083084

PATIENT
  Age: 44 Year
  Sex: Female

DRUGS (3)
  1. LAMOTRIN [Concomitant]
  2. TRINTELLIX [Concomitant]
     Active Substance: VORTIOXETINE HYDROBROMIDE
  3. SAPHRIS [Suspect]
     Active Substance: ASENAPINE MALEATE

REACTIONS (1)
  - Death [Fatal]
